FAERS Safety Report 8800649 (Version 3)
Quarter: 2017Q4

REPORT INFORMATION
  Report Type: Spontaneous
  Country: US (occurrence: US)
  Receive Date: 20120921
  Receipt Date: 20171003
  Transmission Date: 20180321
  Serious: Yes (Other)
  Sender: FDA-Public Use
  Company Number: US-ROCHE-1131787

PATIENT
  Age: 71 Year
  Sex: Female

DRUGS (12)
  1. ACTONEL [Suspect]
     Active Substance: RISEDRONATE SODIUM
     Indication: OSTEOPOROSIS
     Route: 065
     Dates: start: 200312, end: 200703
  2. AMBIEN [Concomitant]
     Active Substance: ZOLPIDEM TARTRATE
  3. BONIVA [Suspect]
     Active Substance: IBANDRONATE SODIUM
     Indication: OSTEOPOROSIS
     Route: 048
     Dates: start: 200703, end: 201110
  4. CELEBREX [Concomitant]
     Active Substance: CELECOXIB
     Route: 048
  5. EPIPEN [Concomitant]
     Active Substance: EPINEPHRINE
     Dosage: AS NEEDED
     Route: 065
  6. PROTONIX (OMEPRAZOLE) [Concomitant]
     Active Substance: OMEPRAZOLE
  7. BONIVA [Suspect]
     Active Substance: IBANDRONATE SODIUM
     Route: 048
     Dates: start: 200405, end: 200604
  8. ZESTRIL [Concomitant]
     Active Substance: LISINOPRIL
     Route: 048
  9. FOSAMAX [Suspect]
     Active Substance: ALENDRONATE SODIUM
     Indication: OSTEOPOROSIS
     Route: 065
     Dates: start: 1996, end: 200312
  10. FOSAMAX [Suspect]
     Active Substance: ALENDRONATE SODIUM
     Route: 065
     Dates: start: 199601, end: 200307
  11. ACTONEL [Suspect]
     Active Substance: RISEDRONATE SODIUM
     Route: 065
     Dates: start: 200703, end: 201107
  12. PEPCID (UNITED STATES) [Concomitant]

REACTIONS (8)
  - Chest pain [Recovered/Resolved]
  - Blood glucose increased [Unknown]
  - Low turnover osteopathy [Unknown]
  - Bone disorder [Unknown]
  - Anxiety [Unknown]
  - Femur fracture [Unknown]
  - Upper respiratory tract infection [Unknown]
  - Emotional distress [Unknown]

NARRATIVE: CASE EVENT DATE: 20101103
